FAERS Safety Report 18640979 (Version 3)
Quarter: 2021Q1

REPORT INFORMATION
  Report Type: Spontaneous
  Country: US (occurrence: US)
  Receive Date: 20201221
  Receipt Date: 20210125
  Transmission Date: 20210419
  Serious: No
  Sender: FDA-Public Use
  Company Number: US-ASTRAZENECA-2020SF62352

PATIENT
  Sex: Female
  Weight: 61.7 kg

DRUGS (2)
  1. OZEMPIC [Concomitant]
     Active Substance: SEMAGLUTIDE
  2. BYDUREON BCISE [Suspect]
     Active Substance: EXENATIDE
     Indication: DIABETES MELLITUS
     Route: 058
     Dates: start: 20201129

REACTIONS (7)
  - Intentional device misuse [Unknown]
  - Wrong technique in device usage process [Unknown]
  - Device malfunction [Unknown]
  - Pain [Unknown]
  - Device physical property issue [Unknown]
  - Device leakage [Unknown]
  - Product packaging quantity issue [Unknown]
